FAERS Safety Report 11818324 (Version 1)
Quarter: 2015Q4

REPORT INFORMATION
  Report Type: Spontaneous
  Country: US (occurrence: US)
  Receive Date: 20151210
  Receipt Date: 20151210
  Transmission Date: 20160305
  Serious: No
  Sender: FDA-Public Use
  Company Number: US-JNJFOC-20150609716

PATIENT
  Age: 16 Year
  Sex: Male

DRUGS (2)
  1. RISPERDAL [Suspect]
     Active Substance: RISPERIDONE
     Indication: AUTISM
     Dosage: 2 MG, 4 MG
     Route: 048
     Dates: start: 199907, end: 200801
  2. INVEGA [Suspect]
     Active Substance: PALIPERIDONE
     Indication: AUTISM
     Dosage: VARYING DOSES OF 3 MG, 6 MG, 9 MG
     Route: 048
     Dates: start: 200702, end: 200801

REACTIONS (5)
  - Abnormal weight gain [Unknown]
  - Product use issue [Unknown]
  - Off label use [Unknown]
  - Gynaecomastia [Unknown]
  - Extrapyramidal disorder [Unknown]

NARRATIVE: CASE EVENT DATE: 200702
